FAERS Safety Report 13572355 (Version 1)
Quarter: 2017Q2

REPORT INFORMATION
  Report Type: Spontaneous
  Country: US (occurrence: US)
  Receive Date: 20170523
  Receipt Date: 20170523
  Transmission Date: 20170830
  Serious: No
  Sender: FDA-Public Use
  Company Number: US-JNJFOC-20170323325

PATIENT
  Sex: Female
  Weight: 50 kg

DRUGS (5)
  1. LISINOPRIL. [Concomitant]
     Active Substance: LISINOPRIL
  2. ASPIRIN. [Concomitant]
     Active Substance: ASPIRIN
  3. IMBRUVICA [Suspect]
     Active Substance: IBRUTINIB
     Indication: PRODUCT USED FOR UNKNOWN INDICATION
     Route: 048
     Dates: start: 20170214
  4. IRON [Concomitant]
     Active Substance: IRON
  5. PREMARIN [Concomitant]
     Active Substance: ESTROGENS, CONJUGATED

REACTIONS (2)
  - Nasal ulcer [Not Recovered/Not Resolved]
  - Stomatitis [Not Recovered/Not Resolved]
